FAERS Safety Report 8532305-7 (Version None)
Quarter: 2012Q3

REPORT INFORMATION
  Report Type: 
  Country: None (occurrence: None)
  Receive Date: 20120724
  Receipt Date: 20120716
  Transmission Date: 20120928
  Serious: No
  Sender: FDA-Public Use
  Company Number: US-B.I. PHARMACEUTICALS,INC./RIDGEFIELD-2012-BP-15797BP

PATIENT
  Sex: Female

DRUGS (8)
  1. DULERA [Concomitant]
     Indication: CHRONIC OBSTRUCTIVE PULMONARY DISEASE
     Dates: start: 20120101
  2. XANAX [Concomitant]
     Indication: ANXIETY
     Dosage: 4 MG
     Route: 048
  3. SEROQUEL [Concomitant]
     Indication: SCHIZOPHRENIA
     Dosage: 1200 MG
     Route: 048
  4. LEVOTHYROXINE SODIUM [Concomitant]
     Indication: HYPOTHYROIDISM
     Dosage: 25 MG
     Route: 048
  5. PAXIL [Concomitant]
     Indication: DEPRESSION
     Dosage: 60 MG
     Route: 048
  6. SEROQUEL [Concomitant]
     Indication: BIPOLAR DISORDER
  7. PAXIL [Concomitant]
     Indication: OBSESSIVE-COMPULSIVE DISORDER
  8. SPIRIVA [Suspect]
     Indication: CHRONIC OBSTRUCTIVE PULMONARY DISEASE
     Dosage: 18 MCG
     Route: 055
     Dates: start: 20120101

REACTIONS (4)
  - PYREXIA [None]
  - FATIGUE [None]
  - DYSPNOEA [None]
  - SPUTUM DISCOLOURED [None]
